FAERS Safety Report 25953738 (Version 1)
Quarter: 2025Q4

REPORT INFORMATION
  Report Type: Spontaneous
  Country: EU (occurrence: EU)
  Receive Date: 20251023
  Receipt Date: 20251023
  Transmission Date: 20260118
  Serious: Yes (Other)
  Sender: GRIFOLS
  Company Number: EU-IGSA-BIG0038764

PATIENT
  Age: 37 Year
  Sex: Male

DRUGS (7)
  1. XEMBIFY [Suspect]
     Active Substance: HUMAN IMMUNOGLOBULIN G
     Indication: Immunodeficiency common variable
     Dosage: 10 GRAM, Q.2WK.
     Route: 058
     Dates: start: 20250814, end: 20250814
  2. XEMBIFY [Suspect]
     Active Substance: HUMAN IMMUNOGLOBULIN G
     Dosage: 10 GRAM, Q.2WK.
     Route: 058
     Dates: start: 20250613
  3. RAMIPRIL [Concomitant]
     Active Substance: RAMIPRIL
  4. AMLODIPINE [Concomitant]
     Active Substance: AMLODIPINE BESYLATE
  5. MIRTAZAPINE [Concomitant]
     Active Substance: MIRTAZAPINE
  6. OMEPRAZOLE [Concomitant]
     Active Substance: OMEPRAZOLE
  7. DESVENLAFAXINE [Concomitant]
     Active Substance: DESVENLAFAXINE

REACTIONS (2)
  - Skin plaque [Recovering/Resolving]
  - Skin necrosis [Recovering/Resolving]

NARRATIVE: CASE EVENT DATE: 20250814
